FAERS Safety Report 16942818 (Version 1)
Quarter: 2019Q4

REPORT INFORMATION
  Report Type: Spontaneous
  Country: GB (occurrence: GB)
  Receive Date: 20191021
  Receipt Date: 20191021
  Transmission Date: 20200122
  Serious: Yes (Disabling, Other)
  Sender: FDA-Public Use
  Company Number: GB-MYLANLABS-2019M1098345

PATIENT
  Age: 74 Year
  Sex: Female
  Weight: 70 kg

DRUGS (13)
  1. AZITHROMYCIN ANHYDROUS. [Concomitant]
     Active Substance: AZITHROMYCIN ANHYDROUS
     Dosage: MONDAY, WEDNESDAY, FRIDAY OVER WINTER MONTHS
     Dates: start: 20190131
  2. COCODAMOL [Concomitant]
     Active Substance: ACETAMINOPHEN\CODEINE PHOSPHATE
     Dosage: TAKE ONE TO TWO FOUR TIMES PER DAY
     Dates: start: 20190916
  3. PREDNISOLONE. [Concomitant]
     Active Substance: PREDNISOLONE
     Dosage: 6 DOSAGE FORM, QD
     Dates: start: 20190806, end: 20190811
  4. LEVOFLOXACIN. [Concomitant]
     Active Substance: LEVOFLOXACIN
     Dosage: 1 DOSAGE FORM, QD (FOR 10 DAYS IN EVENT OF EXACERBATION OF CHEST)
     Dates: start: 20190905, end: 20190906
  5. INCRUSE ELLIPTA [Concomitant]
     Active Substance: UMECLIDINIUM BROMIDE
     Dosage: 1 DOSAGE FORM, QD (IN THE MORNING)
     Route: 055
     Dates: start: 20190131, end: 20190910
  6. NITROFURANTOIN. [Concomitant]
     Active Substance: NITROFURANTOIN
     Dosage: TWICE DAILY
     Dates: start: 20190625, end: 20190628
  7. ATORVASTATIN [Concomitant]
     Active Substance: ATORVASTATIN
     Dosage: 1 DOSAGE FORM, QD
     Dates: start: 20190131
  8. OTOMIZE [Concomitant]
     Active Substance: DEXAMETHASONE\NEOMYCIN SULFATE
     Dosage: UNK, QD (USE THREE TIMES A DAY TO BOTH EARS)
     Dates: start: 20190723, end: 20190730
  9. SALAMOL                            /00139501/ [Concomitant]
     Dosage: 2 DOSAGE FORM, PRN
     Route: 055
     Dates: start: 20190131
  10. GABAPENTIN. [Suspect]
     Active Substance: GABAPENTIN
     Indication: PRODUCT USED FOR UNKNOWN INDICATION
     Dosage: 300 MILLIGRAM (AKE ONE DAILY FOR 3 DAYS THEN FOLLOWED BY TWIC)
     Dates: start: 20190903
  11. TRELEGY ELLIPTA [Concomitant]
     Active Substance: FLUTICASONE FUROATE\UMECLIDINIUM BROMIDE\VILANTEROL TRIFENATATE
     Dosage: 1 DOSAGE FORM, QD
     Route: 055
     Dates: start: 20190308
  12. NYSTAN [Concomitant]
     Active Substance: NYSTATIN
     Dosage: 4 MILLILITER, QD
     Dates: start: 20190723, end: 20190730
  13. OMEPRAZOLE. [Concomitant]
     Active Substance: OMEPRAZOLE
     Dosage: 1 DOSAGE FORM, QD
     Dates: start: 20190131

REACTIONS (3)
  - Hallucination [Recovered/Resolved]
  - Diarrhoea [Unknown]
  - Feeling cold [Unknown]
